FAERS Safety Report 8074192-X (Version None)
Quarter: 2012Q1

REPORT INFORMATION
  Report Type: 
  Country: None (occurrence: None)
  Receive Date: 20120126
  Receipt Date: 20120120
  Transmission Date: 20120608
  Serious: Yes (Hospitalization)
  Sender: FDA-Public Use
  Company Number: DE-PFIZER INC-2010147878

PATIENT
  Age: 75 Year
  Sex: Female
  Weight: 60 kg

DRUGS (5)
  1. METFORMIN [Concomitant]
     Indication: TYPE 2 DIABETES MELLITUS
     Dosage: 500 MG, 3X/DAY
     Route: 048
     Dates: start: 20070101
  2. RAMIPRIL [Suspect]
     Indication: HYPERTENSION
     Dosage: 10 MG, 1X/DAY
     Route: 048
     Dates: start: 20060601
  3. CITALOPRAM [Suspect]
     Indication: NORMAL PRESSURE HYDROCEPHALUS
     Dosage: 20 MG, 1X/DAY
     Dates: start: 20080201, end: 20081201
  4. BISOPROLOL FUMARATE AND HYDROCHLOROTHIAZIDE [Suspect]
     Indication: HYPERTENSION
     Dosage: 1DF 2X/D, (1DF INCLUDES 5 MG BISOPROLOL AND 12.5 MG HYDROCHLOROTHIAZIDE)
     Route: 048
     Dates: start: 20060601, end: 20081201
  5. MELPERONE [Concomitant]
     Indication: NORMAL PRESSURE HYDROCEPHALUS
     Dosage: 25 MG, 1X/DAY
     Route: 048
     Dates: start: 20080201

REACTIONS (8)
  - HYPONATRAEMIA [None]
  - DIARRHOEA [None]
  - HYPOKALAEMIA [None]
  - GASTROINTESTINAL HAEMORRHAGE [None]
  - GENERAL PHYSICAL HEALTH DETERIORATION [None]
  - INAPPROPRIATE ANTIDIURETIC HORMONE SECRETION [None]
  - BEDRIDDEN [None]
  - MENTAL IMPAIRMENT [None]
